FAERS Safety Report 15952314 (Version 4)
Quarter: 2019Q3

REPORT INFORMATION
  Report Type: Spontaneous
  Country: US (occurrence: US)
  Receive Date: 20190211
  Receipt Date: 20190904
  Transmission Date: 20191004
  Serious: No
  Sender: FDA-Public Use
  Company Number: US-PFIZER INC-2018346448

PATIENT
  Age: 52 Year
  Sex: Female

DRUGS (26)
  1. LEVETIRACETAM. [Concomitant]
     Active Substance: LEVETIRACETAM
     Indication: SEIZURE
     Dosage: 500 MG, 1X/DAY
     Dates: start: 201404
  2. LEVOTHYROXINE. [Concomitant]
     Active Substance: LEVOTHYROXINE
     Dosage: 125 UG, ALTERNATE DAY
     Dates: start: 201606
  3. SELENIUM [Concomitant]
     Active Substance: SELENIUM
     Indication: ALOPECIA
     Dosage: 200 UG, 1X/DAY
  4. SUDAFED HEAD COLD + SINUS [Concomitant]
     Dosage: UNK, AS NEEDED
  5. MAGNESIUM 400 [Concomitant]
     Indication: SLEEP DISORDER
     Dosage: UNK, 2X/DAY (1-3 TABS, 2X/DAY (MAGNESIUM 400, 1-3 TAB 2/ DAY))
     Dates: start: 201412
  6. B6 [Concomitant]
     Active Substance: PYRIDOXINE HYDROCHLORIDE
     Dosage: 100 UG, 1X/DAY
  7. FISH OIL [Concomitant]
     Active Substance: FISH OIL
     Dosage: 1000 MG, 2X/DAY
  8. FLONASE [Concomitant]
     Active Substance: FLUTICASONE PROPIONATE
     Dosage: UNK (2 PUFFS/NOSTRIL PM /DAY)
     Route: 045
  9. LORAZEPAM. [Concomitant]
     Active Substance: LORAZEPAM
     Indication: PROPHYLAXIS
     Dosage: 1 MG, AS NEEDED
  10. MELOXICAM. [Concomitant]
     Active Substance: MELOXICAM
     Indication: RHEUMATOID ARTHRITIS
     Dosage: 15 MG, 1X/DAY
  11. XELJANZ XR [Suspect]
     Active Substance: TOFACITINIB CITRATE
     Dosage: 20 MG, 1X/DAY
     Dates: start: 201809
  12. CARBAMAZEPINE. [Concomitant]
     Active Substance: CARBAMAZEPINE
     Indication: SEIZURE
     Dosage: 1000 MG, DAILY (2 TABS AM 3 TABS PM)
  13. XELJANZ [Concomitant]
     Active Substance: TOFACITINIB CITRATE
     Indication: RHEUMATOID ARTHRITIS
     Dosage: UNK
  14. VITAMIN D3 [Concomitant]
     Active Substance: CHOLECALCIFEROL
     Dosage: 1000 IU, DAILY
  15. PROBIOTIC 10 [Concomitant]
     Active Substance: DIETARY SUPPLEMENT\PROBIOTICS
     Indication: MUSCLE TIGHTNESS
     Dosage: 1 DF, DAILY (1 SOFTGEL)
  16. ZYRTEC [Concomitant]
     Active Substance: CETIRIZINE HYDROCHLORIDE
     Dosage: UNK, 1X/DAY
  17. CALCIUM + MAGNESIUM + ZINK [Concomitant]
     Dosage: 1 DF, 2X/DAY
  18. BIOTIN [Concomitant]
     Active Substance: BIOTIN
     Dosage: UNK
  19. TYLENOL EXTRA STRENGTH [Concomitant]
     Active Substance: ACETAMINOPHEN
     Dosage: UNK, AS NEEDED
  20. XELJANZ XR [Suspect]
     Active Substance: TOFACITINIB CITRATE
     Indication: RHEUMATOID ARTHRITIS
     Dosage: 11 MG, 1X/DAY (QUANTITY # 30 (30 DAYS))
     Route: 048
  21. MAGNESIUM 400 [Concomitant]
     Indication: CONSTIPATION
  22. MELATONIN [Concomitant]
     Active Substance: MELATONIN
     Indication: HIDRADENITIS
     Dosage: UNK (5 MG 12 TAB HS)
  23. NAPROXEN. [Concomitant]
     Active Substance: NAPROXEN
     Dosage: 200 MG, AS NEEDED
  24. XELJANZ XR [Suspect]
     Active Substance: TOFACITINIB CITRATE
     Indication: ARTHRITIS
     Dosage: 11 MG, 1X/DAY(UP TO 28 DAYS, 28 TABLETS)
     Route: 048
  25. IRON [Concomitant]
     Active Substance: IRON
     Dosage: 65 MG, 2X/DAY
  26. MELATONIN [Concomitant]
     Active Substance: MELATONIN
     Indication: SLEEP DISORDER

REACTIONS (5)
  - Musculoskeletal pain [Recovered/Resolved]
  - Neck pain [Recovered/Resolved]
  - Arthralgia [Unknown]
  - Fall [Recovered/Resolved]
  - Product prescribing error [Unknown]

NARRATIVE: CASE EVENT DATE: 201809
